FAERS Safety Report 10419768 (Version 1)
Quarter: 2014Q2

REPORT INFORMATION
  Report Type: Spontaneous
  Country: US (occurrence: None)
  Receive Date: 20140625
  Receipt Date: 20140625
  Transmission Date: 20141212
  Serious: No
  Sender: FDA-Public Use
  Company Number: A-US2014-95093

PATIENT
  Age: 49 Year
  Sex: Female

DRUGS (6)
  1. OPSUMIT (MACITENTAN) [Suspect]
     Indication: COR PULMONALE CHRONIC
     Route: 048
     Dates: start: 20131126
  2. ADCIRCA (TADALAFIL) [Concomitant]
  3. CELLCEPT (MYCOPHENOLATE MOFETIL) [Concomitant]
  4. AVALIDE (HYDROCHLOROTHIAZIDE, IRBESARTAN) [Concomitant]
  5. TYLENOL (CHLORPHENAMINE MALEATE, DEXTROMETHORPHAN HYDROBROMIDE, PARACETAMOL, PSEUDOEPHEDRINE HYDROCHLORIDE) [Concomitant]
  6. LETAIRIS (AMBRISENTAN) [Concomitant]

REACTIONS (1)
  - Abdominal pain upper [None]
